FAERS Safety Report 7771420-2 (Version None)
Quarter: 2011Q3

REPORT INFORMATION
  Report Type: 
  Country: None (occurrence: None)
  Receive Date: 20110922
  Receipt Date: 20100517
  Transmission Date: 20111222
  Serious: Yes (Hospitalization)
  Sender: FDA-Public Use
  Company Number: US-ASTRAZENECA-2009SE16533

PATIENT
  Sex: Male

DRUGS (3)
  1. RISPERDAL [Concomitant]
     Route: 048
     Dates: start: 20040109
  2. LEXAPRO [Concomitant]
     Route: 048
     Dates: start: 20040121
  3. SEROQUEL [Suspect]
     Dosage: 100 MG 1 TAB QAM AND 2 QHS
     Route: 048
     Dates: start: 20040121

REACTIONS (2)
  - DIABETIC KETOACIDOSIS [None]
  - DIABETES MELLITUS [None]
